FAERS Safety Report 14841252 (Version 1)
Quarter: 2018Q2

REPORT INFORMATION
  Report Type: Spontaneous
  Country: FR (occurrence: FR)
  Receive Date: 20180503
  Receipt Date: 20180503
  Transmission Date: 20180711
  Serious: Yes (Other)
  Sender: FDA-Public Use
  Company Number: FR-ROCHE-2114591

PATIENT
  Age: 89 Year
  Sex: Female
  Weight: 53.3 kg

DRUGS (12)
  1. SOLUPRED (FRANCE) [Concomitant]
     Active Substance: PREDNISOLONE
     Route: 065
  2. OGASTORO [Concomitant]
     Active Substance: LANSOPRAZOLE
     Route: 065
  3. CALCIDOSE (FRANCE) [Concomitant]
     Active Substance: CALCIUM CARBONATE
     Route: 065
  4. DISULONE (FRANCE) [Suspect]
     Active Substance: DAPSONE\FERROUS OXALATE
     Indication: PEMPHIGOID
     Route: 048
     Dates: start: 20180216, end: 20180406
  5. LASILIX [Concomitant]
     Active Substance: FUROSEMIDE
     Route: 065
  6. DUPHALAC (FRANCE) [Concomitant]
     Active Substance: LACTULOSE
     Route: 065
  7. ZYLORIC [Concomitant]
     Active Substance: ALLOPURINOL
     Route: 065
  8. PARACETAMOL [Concomitant]
     Active Substance: ACETAMINOPHEN
     Route: 065
  9. CELLCEPT [Suspect]
     Active Substance: MYCOPHENOLATE MOFETIL\MYCOPHENOLATE MOFETIL HYDROCHLORIDE
     Indication: PEMPHIGOID
     Route: 048
     Dates: start: 20180227
  10. DIFFU K [Concomitant]
     Active Substance: POTASSIUM CHLORIDE
     Route: 065
  11. KARDEGIC [Concomitant]
     Active Substance: ASPIRIN DL-LYSINE
     Route: 065
  12. FUMAFER [Concomitant]
     Active Substance: FERROUS FUMARATE
     Route: 065

REACTIONS (1)
  - Haemolytic anaemia [Not Recovered/Not Resolved]

NARRATIVE: CASE EVENT DATE: 20180327
